FAERS Safety Report 9943412 (Version 1)
Quarter: 2014Q1

REPORT INFORMATION
  Report Type: Spontaneous
  Country: US (occurrence: US)
  Receive Date: 20140303
  Receipt Date: 20140303
  Transmission Date: 20141002
  Serious: Yes (Death)
  Sender: FDA-Public Use
  Company Number: US-INCYTE CORPORATION-2014IN000523

PATIENT
  Age: 77 Year
  Sex: Male
  Weight: 63.95 kg

DRUGS (13)
  1. JAKAFI [Suspect]
     Indication: MYELODYSPLASTIC SYNDROME
     Dosage: 5 MG, BID
     Route: 048
  2. MULTIVITAMIN                       /00097801/ [Concomitant]
  3. TYLENOL                            /00020001/ [Concomitant]
  4. BACTRIM [Concomitant]
  5. ESTRADIOL [Concomitant]
  6. FUROSEMIDE [Concomitant]
  7. HYDROCODONE-ACETAMINOPHEN [Concomitant]
  8. LEVOTHYROXINE [Concomitant]
  9. ONDANSETRON [Concomitant]
  10. PANTOPRAZOLE [Concomitant]
  11. POTASSIUM [Concomitant]
  12. PROMETHAZINE [Concomitant]
  13. TRAVATAN [Concomitant]

REACTIONS (1)
  - Death [Fatal]
